FAERS Safety Report 6447636-4 (Version None)
Quarter: 2009Q4

REPORT INFORMATION
  Report Type: 
  Country: None (occurrence: None)
  Receive Date: 20091119
  Receipt Date: 20091110
  Transmission Date: 20100525
  Serious: Yes (Other)
  Sender: FDA-Public Use
  Company Number: US-JNJCH-2009029614

PATIENT
  Age: 19 Year
  Sex: Female
  Weight: 49.9 kg

DRUGS (2)
  1. VISINE-A [Suspect]
     Indication: EYE ALLERGY
     Dosage: TEXT:ONE DROP IN EACH EYE ONCE OR TWICE DAILY
     Route: 047
     Dates: start: 20091108, end: 20091110
  2. EXCEDRIN (MIGRAINE) [Concomitant]
     Indication: MIGRAINE
     Dosage: TEXT:UNSPECIFIED
     Route: 065

REACTIONS (1)
  - MYDRIASIS [None]
